FAERS Safety Report 5457197-4 (Version None)
Quarter: 2007Q3

REPORT INFORMATION
  Report Type: 
  Country: None (occurrence: None)
  Receive Date: 20070918
  Receipt Date: 20070118
  Transmission Date: 20080115
  Serious: No
  Sender: FDA-Public Use
  Company Number: US-ASTRAZENECA-2007UW01006

PATIENT
  Age: 16 Year
  Sex: Female
  Weight: 45.4 kg

DRUGS (2)
  1. SEROQUEL [Suspect]
     Indication: BIPOLAR DISORDER
     Route: 048
  2. WELLBUTRIN [Interacting]

REACTIONS (3)
  - DRUG INTERACTION [None]
  - PARAESTHESIA [None]
  - TREMOR [None]
